FAERS Safety Report 7653865-4 (Version None)
Quarter: 2011Q3

REPORT INFORMATION
  Report Type: 
  Country: None (occurrence: None)
  Receive Date: 20110727
  Receipt Date: 20101013
  Transmission Date: 20111222
  Serious: Yes (Other)
  Sender: FDA-Public Use
  Company Number: OMPQ-PR-1010S-0899

PATIENT
  Age: 66 Year
  Sex: Female

DRUGS (1)
  1. OMNIPAQUE 70 [Suspect]
     Indication: ABDOMINAL PAIN
     Dosage: 150 ML, SINGLE DOSE, INTRAVENOUS
     Route: 042
     Dates: start: 20100928, end: 20100928

REACTIONS (5)
  - HYPERSENSITIVITY [None]
  - URTICARIA [None]
  - NASAL CONGESTION [None]
  - COUGH [None]
  - PRURITUS [None]
